FAERS Safety Report 9559150 (Version 1)
Quarter: 2013Q3

REPORT INFORMATION
  Report Type: Spontaneous
  Country: US (occurrence: US)
  Receive Date: 20130927
  Receipt Date: 20130927
  Transmission Date: 20140515
  Serious: Yes (Other)
  Sender: FDA-Public Use
  Company Number: US-BRISTOL-MYERS SQUIBB COMPANY-19406586

PATIENT
  Sex: Female

DRUGS (1)
  1. ELIQUIS [Suspect]

REACTIONS (2)
  - Gastric banding [Unknown]
  - Circumstance or information capable of leading to medication error [Unknown]
